FAERS Safety Report 7251690-X (Version None)
Quarter: 2011Q1

REPORT INFORMATION
  Report Type: 
  Country: None (occurrence: None)
  Receive Date: 20110128
  Receipt Date: 20110119
  Transmission Date: 20110831
  Serious: Yes (Other)
  Sender: FDA-Public Use
  Company Number: GB-ELI_LILLY_AND_COMPANY-GB201101004511

PATIENT
  Sex: Male

DRUGS (2)
  1. STRATTERA [Suspect]
     Dosage: 20 MG, UNK
  2. STRATTERA [Suspect]
     Dosage: 20 MG, UNK

REACTIONS (2)
  - EPISTAXIS [None]
  - HEADACHE [None]
